FAERS Safety Report 15877586 (Version 1)
Quarter: 2019Q1

REPORT INFORMATION
  Report Type: Spontaneous
  Country: FR (occurrence: FR)
  Receive Date: 20190128
  Receipt Date: 20190128
  Transmission Date: 20190417
  Serious: Yes (Hospitalization)
  Sender: FDA-Public Use
  Company Number: FR-TEVA-2019-FR-1003683

PATIENT
  Age: 55 Year
  Sex: Male

DRUGS (1)
  1. FLUOROURACILE [Suspect]
     Active Substance: FLUOROURACIL
     Indication: ADENOCARCINOMA GASTRIC
     Dosage: NOT SPECIFIED
     Route: 041
     Dates: start: 20180921

REACTIONS (1)
  - Administration site extravasation [Recovering/Resolving]

NARRATIVE: CASE EVENT DATE: 20180921
